APPROVED DRUG PRODUCT: ALUNBRIG
Active Ingredient: BRIGATINIB
Strength: 30MG
Dosage Form/Route: TABLET;ORAL
Application: N208772 | Product #001
Applicant: TAKEDA PHARMACEUTICALS USA INC
Approved: Apr 28, 2017 | RLD: Yes | RS: No | Type: RX

PATENTS:
Patent 9611283 | Expires: Apr 10, 2034
Patent 9273077 | Expires: May 21, 2029
Patent 10385078 | Expires: Nov 10, 2035
Patent 9012462 | Expires: Apr 28, 2031

EXCLUSIVITY:
Code: ODE-300 | Date: May 22, 2027